FAERS Safety Report 8285711-2 (Version None)
Quarter: 2012Q2

REPORT INFORMATION
  Report Type: 
  Country: None (occurrence: None)
  Receive Date: 20120413
  Receipt Date: 20120404
  Transmission Date: 20120825
  Serious: Yes (Other)
  Sender: FDA-Public Use
  Company Number: FR-ROCHE-1058622

PATIENT
  Sex: Female

DRUGS (2)
  1. XOLAIR [Suspect]
     Dosage: STARTED WITH REDUCED DOSE
  2. XOLAIR [Suspect]
     Indication: PRODUCT USED FOR UNKNOWN INDICATION

REACTIONS (4)
  - GENERALISED ERYTHEMA [None]
  - HYPERSENSITIVITY [None]
  - INJECTION SITE SWELLING [None]
  - PHARYNGEAL OEDEMA [None]
